FAERS Safety Report 4283339-2 (Version None)
Quarter: 2004Q1

REPORT INFORMATION
  Report Type: 
  Country: None (occurrence: None)
  Receive Date: 20040129
  Receipt Date: 20040116
  Transmission Date: 20041129
  Serious: Yes (Hospitalization)
  Sender: FDA-Public Use
  Company Number: FABR-10240

PATIENT
  Age: 43 Year
  Sex: Male
  Weight: 50.2 kg

DRUGS (17)
  1. FABRAZYME [Suspect]
     Indication: FABRY'S DISEASE
     Dosage: 35 MG Q2WKS IV
     Route: 042
     Dates: start: 20030409
  2. FABRAZYME [Suspect]
     Indication: FABRY'S DISEASE
     Dosage: 0.2 MG/KG IV
     Route: 042
     Dates: start: 20030903
  3. FABRAZYME [Suspect]
     Indication: FABRY'S DISEASE
     Dosage: 0.5 MG/KG IV
     Route: 042
  4. FABRAZYME [Suspect]
     Indication: FABRY'S DISEASE
     Dosage: 30 MG IV
     Route: 042
  5. MECOBALAMIN [Concomitant]
  6. CARBAMAZEPINE [Concomitant]
  7. NICERITOL [Concomitant]
  8. OMEPRAZOLE [Concomitant]
  9. ASPIRIN/DIALUMINATE [Concomitant]
  10. METOPROLOL TARTRATE [Concomitant]
  11. CALCIUM CARBONATE [Concomitant]
  12. REBAMIPIDE [Concomitant]
  13. KETOPROFEN [Concomitant]
  14. COLD REMEDY (COMBINATION) [Concomitant]
  15. OMEPRAZOLE [Concomitant]
  16. HYDROXYZINE [Concomitant]
  17. ACETAMINOPHEN [Concomitant]

REACTIONS (9)
  - BLOOD PRESSURE DECREASED [None]
  - CHEST DISCOMFORT [None]
  - ERYTHEMA [None]
  - FEELING HOT [None]
  - GAMMOPATHY [None]
  - MALAISE [None]
  - PALPITATIONS [None]
  - PRURITUS GENERALISED [None]
  - PYREXIA [None]
